FAERS Safety Report 9864137 (Version 6)
Quarter: 2014Q1

REPORT INFORMATION
  Report Type: Spontaneous
  Country: JP (occurrence: JP)
  Receive Date: 20140203
  Receipt Date: 20140325
  Transmission Date: 20141002
  Serious: Yes (Hospitalization, Other)
  Sender: FDA-Public Use
  Company Number: JP-PFIZER INC-2014030492

PATIENT
  Age: 72 Year
  Sex: Male
  Weight: 38 kg

DRUGS (48)
  1. IRINOTECAN HCL [Suspect]
     Indication: COLON CANCER METASTATIC
     Dosage: 180 MG/M2, 1X/DAY
     Route: 041
     Dates: start: 20130826, end: 20130826
  2. IRINOTECAN HCL [Suspect]
     Dosage: UNK, ONCE A DAY
     Route: 041
     Dates: start: 20130909, end: 20130909
  3. IRINOTECAN HCL [Suspect]
     Dosage: UNK, ONCE A DAY
     Route: 041
     Dates: start: 20130923, end: 20130923
  4. IRINOTECAN HCL [Suspect]
     Dosage: UNK, ONCE A DAY
     Route: 041
     Dates: start: 20131007, end: 20131007
  5. IRINOTECAN HCL [Suspect]
     Dosage: UNK, ONCE A DAY
     Route: 041
     Dates: start: 20131021, end: 20131021
  6. IRINOTECAN HCL [Suspect]
     Dosage: UNK, ONCE A DAY
     Route: 041
     Dates: start: 20131104, end: 20131104
  7. IRINOTECAN HCL [Suspect]
     Dosage: 120 MG/M2, 1X/DAY
     Route: 041
     Dates: start: 20140106, end: 20140106
  8. LEVOLEUCOVORIN CALCIUM [Suspect]
     Indication: COLON CANCER METASTATIC
     Dosage: 200 MG/M2, 1X/DAY
     Route: 041
     Dates: start: 20130826, end: 20130826
  9. LEVOLEUCOVORIN CALCIUM [Suspect]
     Dosage: 200 MG/M2, 1X/DAY
     Route: 041
     Dates: start: 20130909, end: 20130909
  10. LEVOLEUCOVORIN CALCIUM [Suspect]
     Dosage: 200 MG/M2, 1X/DAY
     Route: 041
     Dates: start: 20130923, end: 20130923
  11. LEVOLEUCOVORIN CALCIUM [Suspect]
     Dosage: 200 MG/M2, 1X/DAY
     Route: 041
     Dates: start: 20131007, end: 20131007
  12. LEVOLEUCOVORIN CALCIUM [Suspect]
     Dosage: 200 MG/M2, 1X/DAY
     Route: 041
     Dates: start: 20131021, end: 20131021
  13. LEVOLEUCOVORIN CALCIUM [Suspect]
     Dosage: 200 MG/M2, 1X/DAY
     Route: 041
     Dates: start: 20131104, end: 20131104
  14. LEVOLEUCOVORIN CALCIUM [Suspect]
     Dosage: 200 MG/M2, 1X/DAY
     Route: 041
     Dates: start: 20140106, end: 20140106
  15. 5-FU [Suspect]
     Indication: COLON CANCER METASTATIC
     Dosage: 400 MG/M2, 1X/DAY
     Route: 040
     Dates: start: 20130826, end: 20130826
  16. 5-FU [Suspect]
     Dosage: 2400 MG, ONCE IN 2DAYS
     Route: 041
     Dates: start: 20130826, end: 20130826
  17. 5-FU [Suspect]
     Dosage: UNK, ONCE A DAY
     Route: 040
     Dates: start: 20130909, end: 20130909
  18. 5-FU [Suspect]
     Dosage: UNK , ONCE IN 2DAYS
     Route: 041
     Dates: start: 20130909, end: 20130909
  19. 5-FU [Suspect]
     Dosage: UNK MG, ONCE A DAY
     Route: 040
     Dates: start: 20130923, end: 20130923
  20. 5-FU [Suspect]
     Dosage: UNK, ONCE IN 2DAYS
     Route: 041
     Dates: start: 20130923, end: 20130923
  21. 5-FU [Suspect]
     Dosage: UNK, ONCE A DAY
     Route: 040
     Dates: start: 20131007, end: 20131007
  22. 5-FU [Suspect]
     Dosage: UNK MG, ONCE IN 2DAYS
     Route: 041
     Dates: start: 20131007, end: 20131007
  23. 5-FU [Suspect]
     Dosage: UNK, ONCE A DAY
     Route: 040
     Dates: start: 20131021, end: 20131021
  24. 5-FU [Suspect]
     Dosage: UNK, ONCE IN 2DAYS
     Route: 041
     Dates: start: 20131021, end: 20131021
  25. 5-FU [Suspect]
     Dosage: UNK, ONCE A DAY
     Route: 040
     Dates: start: 20131104, end: 20131104
  26. 5-FU [Suspect]
     Dosage: UNK, ONCE IN 2DAYS
     Route: 041
     Dates: start: 20131104, end: 20131104
  27. 5-FU [Suspect]
     Dosage: 240 MG/M2, 1X/DAY
     Route: 040
     Dates: start: 20140106, end: 20140106
  28. 5-FU [Suspect]
     Dosage: 1500 MG/M2, 1X/DAY
     Route: 041
     Dates: start: 20140106, end: 20140106
  29. AVE0005 [Suspect]
     Indication: COLON CANCER METASTATIC
     Dosage: 4 MG/KG, 1X/DAY
     Route: 041
     Dates: start: 20130826, end: 20130826
  30. AVE0005 [Suspect]
     Dosage: 4 MG/KG, 1X/DAY
     Route: 041
     Dates: start: 20130909, end: 20130909
  31. AVE0005 [Suspect]
     Dosage: 4 MG/KG, 1X/DAY
     Route: 041
     Dates: start: 20130923, end: 20130923
  32. AVE0005 [Suspect]
     Dosage: 4 MG/KG, 1X/DAY
     Route: 041
     Dates: start: 20131007, end: 20131007
  33. AVE0005 [Suspect]
     Dosage: 4 MG/KG, 1X/DAY
     Route: 041
     Dates: start: 20131021, end: 20131021
  34. AVE0005 [Suspect]
     Dosage: 4 MG/KG, 1X/DAY
     Route: 041
     Dates: start: 20131104, end: 20131104
  35. RANITIDINE [Concomitant]
     Dosage: UNK
     Dates: start: 20091028
  36. NEUROVITAN [Concomitant]
     Dosage: UNK
     Dates: start: 20121126
  37. CYMBALTA [Concomitant]
     Dosage: UNK
     Dates: start: 20130708
  38. AZUNOL [Concomitant]
     Dosage: UNK
     Dates: start: 20130924
  39. MIYA BM [Concomitant]
     Dosage: UNK
     Dates: start: 20131007
  40. CALONAL [Concomitant]
     Dosage: UNK
     Dates: start: 20131105
  41. LOBU [Concomitant]
     Dosage: UNK
     Dates: start: 20131113
  42. TEPRENONE [Concomitant]
     Dosage: UNK
     Dates: start: 20131113
  43. LACTEC [Concomitant]
     Dosage: UNK
     Dates: start: 20140117, end: 20140120
  44. DEXART [Concomitant]
     Dosage: UNK
     Dates: start: 20140106, end: 20140117
  45. CRAVIT [Concomitant]
     Dosage: UNK
     Dates: start: 20140117, end: 20140120
  46. SENNOSIDES [Concomitant]
     Dosage: UNK
     Dates: start: 20140106, end: 20140108
  47. LOPERAMIDE HYDROCHLORIDE [Concomitant]
     Dosage: UNK
     Dates: start: 20140111, end: 20140116
  48. KN-1B [Concomitant]
     Dosage: UNK
     Dates: start: 20140120

REACTIONS (10)
  - Dehydration [Recovered/Resolved]
  - Decreased appetite [Recovered/Resolved]
  - Diarrhoea [Recovered/Resolved]
  - Leukopenia [Recovered/Resolved]
  - Blood urea increased [Recovered/Resolved]
  - Ascites [Unknown]
  - Flatulence [Not Recovered/Not Resolved]
  - Vomiting [Unknown]
  - Nausea [Unknown]
  - Pleural effusion [Unknown]
